FAERS Safety Report 4835853-6 (Version None)
Quarter: 2005Q4

REPORT INFORMATION
  Report Type: 
  Country: None (occurrence: None)
  Receive Date: 20051118
  Receipt Date: 20051109
  Transmission Date: 20060501
  Serious: Yes (Other)
  Sender: FDA-Public Use
  Company Number: 2005122906

PATIENT
  Sex: Female
  Weight: 53.978 kg

DRUGS (11)
  1. CELEBREX [Suspect]
     Indication: ARTHRALGIA
     Dosage: 200 MG (200 MG,  IN 1 D), ORAL
     Route: 048
  2. PROCARDIA [Concomitant]
  3. TENORMIN [Concomitant]
  4. POTASSIUM (POTASSIUM) [Concomitant]
  5. PRAVACHOL (PRAVASTATION SODIUM) [Concomitant]
  6. PAXIL [Concomitant]
  7. ACETYLSALIYCLIC ACID (ACETYLSALICYLIC ACID) [Concomitant]
  8. LASIX [Concomitant]
  9. LIBRIUM [Concomitant]
  10. TRAMADOL HCL [Concomitant]
  11. AMIODARONE HCL [Concomitant]

REACTIONS (11)
  - AORTIC ANEURYSM [None]
  - BACK DISORDER [None]
  - CONDITION AGGRAVATED [None]
  - DRUG INEFFECTIVE [None]
  - ECONOMIC PROBLEM [None]
  - INFECTION [None]
  - POOR QUALITY DRUG ADMINISTERED [None]
  - ROTATOR CUFF SYNDROME [None]
  - SHOULDER ARTHROPLASTY [None]
  - TREATMENT NONCOMPLIANCE [None]
  - WRONG DRUG ADMINISTERED [None]
